FAERS Safety Report 22258059 (Version 1)
Quarter: 2023Q2

REPORT INFORMATION
  Report Type: Spontaneous
  Country: CN (occurrence: CN)
  Receive Date: 20230427
  Receipt Date: 20230427
  Transmission Date: 20230721
  Serious: Yes (Hospitalization, Other)
  Sender: FDA-Public Use
  Company Number: CN-STRIDES ARCOLAB LIMITED-2023SP006140

PATIENT
  Age: 10 Month
  Sex: Male

DRUGS (7)
  1. PREDNISOLONE [Suspect]
     Active Substance: PREDNISOLONE
     Indication: Langerhans^ cell histiocytosis
     Dosage: 40 MILLIGRAM/SQ. METER (PER DAY) (FIRST LINE INDUCTION THERAPY)
     Route: 048
  2. PREDNISOLONE [Suspect]
     Active Substance: PREDNISOLONE
     Dosage: UNK (DOSE WAS TAPERED IN 2 WEEKS)
     Route: 048
  3. ETOPOSIDE [Suspect]
     Active Substance: ETOPOSIDE
     Indication: Langerhans^ cell histiocytosis
     Dosage: 60 MILLIGRAM/SQ. METER (PER DAY) (FIRST LINE INDUCTION THERAPY; ON DAYS 1-5)
     Route: 041
  4. ETOPOSIDE [Suspect]
     Active Substance: ETOPOSIDE
     Dosage: 150 MILLIGRAM/SQ. METER (PER DAY) (ON DAYS 18, 25, 32 AND 39)
     Route: 041
  5. CLADRIBINE [Suspect]
     Active Substance: CLADRIBINE
     Indication: Langerhans^ cell histiocytosis
     Dosage: 9 MILLIGRAM/SQ. METER (PER DAY) (RECEIVED 6 COURSES; ON DAYS 1-5)
     Route: 041
  6. CYTARABINE [Suspect]
     Active Substance: CYTARABINE
     Indication: Langerhans^ cell histiocytosis
     Dosage: 500 MILLIGRAM/SQ. METER (PER DAY) (RECEIVED 6 COURSES; PER DAY ON DAYS 1-5 EVERY 28 DAYS)
     Route: 041
  7. VINDESINE [Suspect]
     Active Substance: VINDESINE
     Indication: Langerhans^ cell histiocytosis
     Dosage: 3 MILLIGRAM/SQ. METER (PER DAY) (FIRST LINE INDUCTION THERAPY; ON DAY 15, 22, 29 AND 36)
     Route: 041

REACTIONS (8)
  - Granulocytopenia [Unknown]
  - Myelosuppression [Unknown]
  - Pyrexia [Unknown]
  - Febrile neutropenia [Unknown]
  - Sepsis [Unknown]
  - Disease progression [Unknown]
  - Drug ineffective [Unknown]
  - Off label use [Unknown]
